FAERS Safety Report 5166019-0 (Version None)
Quarter: 2006Q4

REPORT INFORMATION
  Report Type: 
  Country: None (occurrence: None)
  Receive Date: 20061128
  Receipt Date: 20061114
  Transmission Date: 20070319
  Serious: Yes (Other)
  Sender: FDA-Public Use
  Company Number: 2006107348

PATIENT
  Age: 34 Year
  Sex: Female
  Weight: 54.4316 kg

DRUGS (3)
  1. ROGAINE [Suspect]
     Indication: ALOPECIA
     Dosage: 1 ML TWICE, TOPICAL
     Route: 061
     Dates: start: 20060701, end: 20060701
  2. DRUG, UNSPECIFIED (DRUG, UNSPECIFIED) [Suspect]
     Indication: HAIR COLOUR CHANGES
     Dosage: TOPICAL
     Route: 061
     Dates: start: 20060701
  3. TETRACYCLINE [Concomitant]

REACTIONS (10)
  - ANXIETY [None]
  - BLISTER [None]
  - BURNING SENSATION [None]
  - CAUSTIC INJURY [None]
  - MUSCULAR WEAKNESS [None]
  - PAIN [None]
  - RASH ERYTHEMATOUS [None]
  - RASH PRURITIC [None]
  - SWELLING FACE [None]
  - VISUAL DISTURBANCE [None]
